FAERS Safety Report 16991165 (Version 1)
Quarter: 2019Q4

REPORT INFORMATION
  Report Type: Report from Study
  Country: BE (occurrence: BE)
  Receive Date: 20191104
  Receipt Date: 20191104
  Transmission Date: 20200122
  Serious: Yes (Hospitalization, Other)
  Sender: FDA-Public Use
  Company Number: BE-NAPPMUNDI-GBR-2019-0072018

PATIENT
  Age: 52 Year
  Sex: Female

DRUGS (13)
  1. TRADONAL [Concomitant]
     Active Substance: TRAMADOL HYDROCHLORIDE
     Dosage: UNK, DAILY (1 CO)
  2. ZOCOR [Concomitant]
     Active Substance: SIMVASTATIN
     Indication: PRODUCT USED FOR UNKNOWN INDICATION
     Dosage: UNK, NOCTE (1 CO AT NIGHTS)
  3. REBIF [Suspect]
     Active Substance: INTERFERON BETA-1A
     Indication: MULTIPLE SCLEROSIS
     Dosage: 44 MCG, UNK (0.33 WK)
     Route: 058
     Dates: start: 20081103
  4. REDOMEX [Suspect]
     Active Substance: AMITRIPTYLINE HYDROCHLORIDE
     Indication: FACIAL PAIN
     Dosage: UNK (1CO0.33 D)
     Route: 065
     Dates: end: 201711
  5. PANTOMED                           /01263204/ [Concomitant]
     Active Substance: PANTOPRAZOLE SODIUM
     Indication: PRODUCT USED FOR UNKNOWN INDICATION
     Dosage: UNK (1 CO AT MORNING AND NIGHT)
  6. DIPIDOLOR [Suspect]
     Active Substance: PIRITRAMIDE
     Indication: FACIAL PAIN
     Dosage: UNK
     Route: 065
  7. LIORESAL [Concomitant]
     Active Substance: BACLOFEN
     Indication: FACIAL PAIN
     Dosage: 10MG (UP TO 3CO / DAY, BUT NOW TAKES 0.5 CO IN THE MORNING, 0.5 CO IN THE AFTERNOON AND 1 CO IN T...
  8. TEGRETOL [Suspect]
     Active Substance: CARBAMAZEPINE
     Indication: FACIAL PAIN
     Dosage: UNK ( (1 CO MORNING, 1 CO AFTERNOON AND 2 CO AT NIGHT))
     Route: 065
  9. TRADONAL [Concomitant]
     Active Substance: TRAMADOL HYDROCHLORIDE
     Indication: PRODUCT USED FOR UNKNOWN INDICATION
     Dosage: UNK (TO BE TAKEN EXTRA IF NEEDED)
  10. AMLOR [Concomitant]
     Active Substance: AMLODIPINE BESYLATE
     Indication: PRODUCT USED FOR UNKNOWN INDICATION
     Dosage: UNK (IF NEEDED WITH HIGH RR)
  11. EMCONCOR [Concomitant]
     Active Substance: BISOPROLOL FUMARATE
     Indication: PRODUCT USED FOR UNKNOWN INDICATION
     Dosage: UNK, DAILY (1 CO MORNING)
  12. MORPHINE SULFATE. [Suspect]
     Active Substance: MORPHINE SULFATE
     Indication: FACIAL PAIN
     Dosage: UNK
     Route: 065
  13. CONTRAMAL [Suspect]
     Active Substance: TRAMADOL HYDROCHLORIDE
     Indication: FACIAL PAIN
     Dosage: UNK (3X30DR PER DAY)
     Route: 065

REACTIONS (18)
  - Dry mouth [Not Recovered/Not Resolved]
  - Memory impairment [Not Recovered/Not Resolved]
  - Hypertension [Not Recovered/Not Resolved]
  - Blood cholesterol increased [Unknown]
  - Incorrect route of product administration [Unknown]
  - Social problem [Unknown]
  - Somnolence [Unknown]
  - Balance disorder [Not Recovered/Not Resolved]
  - Influenza like illness [Not Recovered/Not Resolved]
  - Injection site pain [Recovering/Resolving]
  - Multiple sclerosis [Unknown]
  - Injection site erythema [Recovering/Resolving]
  - Disturbance in attention [Not Recovered/Not Resolved]
  - Neurovascular conflict [Recovering/Resolving]
  - Choking [Unknown]
  - Injection site bruising [Unknown]
  - Trigeminal neuralgia [Recovering/Resolving]
  - Oesophagitis [Not Recovered/Not Resolved]
